FAERS Safety Report 4357578-6 (Version None)
Quarter: 2004Q2

REPORT INFORMATION
  Report Type: 
  Country: None (occurrence: None)
  Receive Date: 20040512
  Receipt Date: 20040512
  Transmission Date: 20050107
  Serious: No
  Sender: FDA-Public Use
  Company Number: None

PATIENT
  Age: 89 Year
  Sex: Female
  Weight: 56.6996 kg

DRUGS (5)
  1. MIDODRINE HCL [Suspect]
     Indication: ORTHOSTATIC HYPOTENSION
     Dosage: 10 MG 3 X S DAY ORAL
     Route: 048
     Dates: start: 20040107, end: 20040130
  2. ZOCOR [Concomitant]
  3. ZOLOFT [Concomitant]
  4. FUROSEMIDE [Concomitant]
  5. POTASSIUM CL [Concomitant]

REACTIONS (2)
  - DRUG INEFFECTIVE [None]
  - PHARMACEUTICAL PRODUCT COMPLAINT [None]
